FAERS Safety Report 18049513 (Version 2)
Quarter: 2020Q3

REPORT INFORMATION
  Report Type: Spontaneous
  Country: US (occurrence: US)
  Receive Date: 20200721
  Receipt Date: 20200727
  Transmission Date: 20201103
  Serious: No
  Sender: FDA-Public Use
  Company Number: US-SA-2020SA186989

PATIENT

DRUGS (2)
  1. NOVOLOG [Concomitant]
     Active Substance: INSULIN ASPART
     Dosage: UNK UNK, TID
  2. LANTUS [Suspect]
     Active Substance: INSULIN GLARGINE
     Indication: TYPE 2 DIABETES MELLITUS
     Dosage: 58 IU, QD

REACTIONS (2)
  - Wrong technique in device usage process [Unknown]
  - Blood glucose decreased [Unknown]
